FAERS Safety Report 11250103 (Version 1)
Quarter: 2015Q3

REPORT INFORMATION
  Report Type: Spontaneous
  Country: US (occurrence: US)
  Receive Date: 20150708
  Receipt Date: 20150708
  Transmission Date: 20151125
  Serious: No
  Sender: FDA-Public Use
  Company Number: US-ELI_LILLY_AND_COMPANY-US200902001289

PATIENT
  Sex: Male
  Weight: 94.79 kg

DRUGS (1)
  1. SYMBYAX [Suspect]
     Active Substance: FLUOXETINE HYDROCHLORIDE\OLANZAPINE

REACTIONS (6)
  - Increased appetite [Unknown]
  - Weight increased [Unknown]
  - Oedema [Unknown]
  - Decreased activity [Unknown]
  - Blood triglycerides abnormal [Unknown]
  - Blood cholesterol abnormal [Unknown]

NARRATIVE: CASE EVENT DATE: 200903
